FAERS Safety Report 17801058 (Version 1)
Quarter: 2020Q2

REPORT INFORMATION
  Report Type: Spontaneous
  Country: AU (occurrence: AU)
  Receive Date: 20200519
  Receipt Date: 20200519
  Transmission Date: 20200714
  Serious: Yes (Hospitalization, Other)
  Sender: FDA-Public Use
  Company Number: AU-TEVA-2020-AU-1235412

PATIENT
  Sex: Male

DRUGS (9)
  1. ESOMEPRAZOLE. [Suspect]
     Active Substance: ESOMEPRAZOLE MAGNESIUM
     Dosage: APPROXIMATELY 28 TABLETS
     Route: 065
     Dates: end: 20191108
  2. XELJANZ [Suspect]
     Active Substance: TOFACITINIB CITRATE
     Dosage: APPROXIMATELY 56 TABLETS
     Route: 065
     Dates: end: 20191108
  3. VALSARTAN/AMLODIPINE 320MG/5MG [Suspect]
     Active Substance: AMLODIPINE\VALSARTAN
     Dosage: APPROXIMATELY 28 TABLETS
     Route: 065
     Dates: end: 20191108
  4. TRAMADOL SR 100 MG TABLET [Suspect]
     Active Substance: TRAMADOL HYDROCHLORIDE
     Dosage: APPROXIMATELY 10 TABLETS
     Route: 065
     Dates: end: 20191108
  5. PARACETAMOL 55G [Suspect]
     Active Substance: ACETAMINOPHEN
     Dosage: APPROXIMATELY 110 TABLETS
     Route: 065
     Dates: end: 20191108
  6. ESCITALOPRAM 10MG [Suspect]
     Active Substance: ESCITALOPRAM OXALATE
     Dosage: APPROXIMATELY 28 TABLETS
     Route: 065
     Dates: end: 20191108
  7. VENLAFAXINE 75MG [Suspect]
     Active Substance: VENLAFAXINE HYDROCHLORIDE
     Dosage: APPROXIMATELY 12 TABLETS
     Route: 065
     Dates: end: 20191108
  8. FLUOXETINE [Suspect]
     Active Substance: FLUOXETINE HYDROCHLORIDE
     Dosage: APPROXIMATELY 28 TABLETS
     Route: 065
     Dates: end: 20191108
  9. MOCLOBEMIDE [Suspect]
     Active Substance: MOCLOBEMIDE
     Dosage: APPROXIMATELY 106 TABLETS
     Route: 065
     Dates: end: 20191108

REACTIONS (1)
  - Intentional overdose [Recovered/Resolved]

NARRATIVE: CASE EVENT DATE: 20191108
